FAERS Safety Report 18807085 (Version 1)
Quarter: 2021Q1

REPORT INFORMATION
  Report Type: Spontaneous
  Country: US (occurrence: US)
  Receive Date: 20210128
  Receipt Date: 20210128
  Transmission Date: 20210419
  Serious: Yes (Hospitalization)
  Sender: FDA-Public Use
  Company Number: None

PATIENT
  Age: 56 Year
  Sex: Male

DRUGS (1)
  1. OXYCODONE TAB 30MG [Suspect]
     Active Substance: OXYCODONE

REACTIONS (3)
  - Oxygen saturation decreased [None]
  - Hypotension [None]
  - Hypersensitivity [None]

NARRATIVE: CASE EVENT DATE: 20201115
